FAERS Safety Report 7297748-0 (Version None)
Quarter: 2011Q1

REPORT INFORMATION
  Report Type: 
  Country: None (occurrence: None)
  Receive Date: 20110214
  Receipt Date: 20110214
  Transmission Date: 20110831
  Serious: Yes (Death)
  Sender: FDA-Public Use
  Company Number: None

PATIENT
  Age: 58 Year
  Sex: Male
  Weight: 90.7194 kg

DRUGS (2)
  1. CYMBALTA [Suspect]
     Indication: PAIN
     Dosage: 30 MG. ONCE DAILY PO
     Route: 048
     Dates: start: 20110111, end: 20110112
  2. CYMBALTA [Suspect]
     Indication: DEPRESSION
     Dosage: 30 MG. ONCE DAILY PO
     Route: 048
     Dates: start: 20110111, end: 20110112

REACTIONS (2)
  - GUN SHOT WOUND [None]
  - COMPLETED SUICIDE [None]
